FAERS Safety Report 13763328 (Version 3)
Quarter: 2017Q3

REPORT INFORMATION
  Report Type: Report from Study
  Country: FR (occurrence: FR)
  Receive Date: 20170718
  Receipt Date: 20170804
  Transmission Date: 20171127
  Serious: Yes (Hospitalization)
  Sender: FDA-Public Use
  Company Number: FR-ROCHE-1961445

PATIENT
  Age: 38 Year
  Sex: Female

DRUGS (10)
  1. PLACEBO [Suspect]
     Active Substance: UNSPECIFIED INGREDIENT
     Route: 042
     Dates: start: 20170713
  2. GEMCITABINE [Suspect]
     Active Substance: GEMCITABINE\GEMCITABINE HYDROCHLORIDE
     Indication: OVARIAN CANCER
     Dosage: LAST DOSE BEFORE THE EVENT 27/APR/2017 700 MG/M2?(1000 MG/M2, D1 + D8)
     Route: 042
     Dates: start: 20161214
  3. BEVACIZUMAB. [Suspect]
     Active Substance: BEVACIZUMAB
     Dosage: RE-STARTED
     Route: 042
     Dates: start: 20170713
  4. EMEND [Concomitant]
     Active Substance: APREPITANT
  5. PLACEBO [Suspect]
     Active Substance: UNSPECIFIED INGREDIENT
     Indication: OVARIAN CANCER
     Dosage: THERAPY DURATION 6500 MONTHS?LAST DOSE OF PLACEBO BEFORE THE EVENT 08/JUN/2017?1200MG, D1) X 6 CYCLE
     Route: 042
     Dates: start: 20161214, end: 20170628
  6. BEVACIZUMAB. [Suspect]
     Active Substance: BEVACIZUMAB
     Indication: OVARIAN CANCER
     Dosage: LAST DOSE OF PLACEBO BEFORE THE EVENT 08/JUN/2017?THERAPY DURATION 6500 MONTHS?(15MG/KG, D1)
     Route: 042
     Dates: start: 20161214, end: 20170628
  7. PLITICAN [Concomitant]
     Active Substance: ALIZAPRIDE HYDROCHLORIDE
  8. OMEPRAZOLE. [Concomitant]
     Active Substance: OMEPRAZOLE
  9. CARBOPLATIN. [Suspect]
     Active Substance: CARBOPLATIN
     Indication: OVARIAN CANCER
     Dosage: LAST DOSE OF PLACEBO BEFORE THE EVENT 20/APR/2017?(AUC = 4, D1)
     Route: 042
     Dates: start: 20161214
  10. IMODIUM [Concomitant]
     Active Substance: LOPERAMIDE HYDROCHLORIDE

REACTIONS (1)
  - Dizziness [Recovered/Resolved]

NARRATIVE: CASE EVENT DATE: 20170623
